FAERS Safety Report 13601266 (Version 1)
Quarter: 2017Q2

REPORT INFORMATION
  Report Type: Spontaneous
  Country: US (occurrence: US)
  Receive Date: 20170601
  Receipt Date: 20170601
  Transmission Date: 20170830
  Serious: Yes (Disabling)
  Sender: FDA-Public Use
  Company Number: None

PATIENT
  Age: 23 Year
  Sex: Female
  Weight: 84.37 kg

DRUGS (2)
  1. OMEPRAZOLE. [Concomitant]
     Active Substance: OMEPRAZOLE
  2. NEXPLANON [Suspect]
     Active Substance: ETONOGESTREL
     Dates: start: 20160511

REACTIONS (16)
  - Fatigue [None]
  - Hypermobility syndrome [None]
  - Pruritus [None]
  - Seborrhoea [None]
  - Nervousness [None]
  - Depersonalisation/derealisation disorder [None]
  - Asthenia [None]
  - Back pain [None]
  - Dysphonia [None]
  - Pyrexia [None]
  - Arthralgia [None]
  - Weight increased [None]
  - Mood altered [None]
  - Disturbance in attention [None]
  - Gastrooesophageal reflux disease [None]
  - Arthropathy [None]

NARRATIVE: CASE EVENT DATE: 20170101
